FAERS Safety Report 11632345 (Version 1)
Quarter: 2015Q4

REPORT INFORMATION
  Report Type: Spontaneous
  Country: DE (occurrence: DE)
  Receive Date: 20151015
  Receipt Date: 20151015
  Transmission Date: 20160304
  Serious: Yes (Hospitalization)
  Sender: FDA-Public Use
  Company Number: DE-ACTAVIS-2015-21962

PATIENT
  Sex: Female
  Weight: 75 kg

DRUGS (3)
  1. SIMVASTATIN (UNKNOWN) [Suspect]
     Active Substance: SIMVASTATIN
     Dosage: 60 MG, DAILY
     Route: 048
     Dates: start: 200708, end: 200710
  2. ATORVASTATIN (UNKNOWN) [Suspect]
     Active Substance: ATORVASTATIN
     Indication: HYPERCHOLESTEROLAEMIA
     Dosage: 40 MG, DAILY
     Route: 048
     Dates: start: 201401, end: 201402
  3. PRAVASTATIN [Suspect]
     Active Substance: PRAVASTATIN\PRAVASTATIN SODIUM
     Indication: HYPERCHOLESTEROLAEMIA
     Dosage: 60 MG, DAILY
     Route: 048
     Dates: start: 201201, end: 201203

REACTIONS (2)
  - Headache [Recovering/Resolving]
  - Depression [Recovering/Resolving]
